FAERS Safety Report 10047177 (Version 3)
Quarter: 2014Q2

REPORT INFORMATION
  Report Type: Spontaneous
  Country: US (occurrence: US)
  Receive Date: 20140331
  Receipt Date: 20140505
  Transmission Date: 20141212
  Serious: Yes (Other)
  Sender: FDA-Public Use
  Company Number: US-PFIZER INC-2014033184

PATIENT
  Age: 76 Year
  Sex: Female
  Weight: 63.49 kg

DRUGS (2)
  1. PREMARIN [Suspect]
     Indication: HORMONE REPLACEMENT THERAPY
     Dosage: UNK, 3X/WEEK
     Route: 067
     Dates: end: 201311
  2. JANUVIA [Concomitant]
     Indication: DIABETES MELLITUS
     Dosage: 100 MG, DAILY

REACTIONS (2)
  - Bladder prolapse [Unknown]
  - Urinary tract infection [Recovered/Resolved]
